FAERS Safety Report 9397376 (Version 1)
Quarter: 2013Q3

REPORT INFORMATION
  Report Type: Spontaneous
  Country: US (occurrence: US)
  Receive Date: 20130712
  Receipt Date: 20130712
  Transmission Date: 20140515
  Serious: Yes (Death)
  Sender: FDA-Public Use
  Company Number: PHHY2013US068482

PATIENT
  Age: 36 Year
  Sex: Female

DRUGS (5)
  1. CARBAMAZEPINE [Suspect]
     Indication: CONVULSION
     Dosage: 600 MG, QD
  2. LEVETIRACETAM [Concomitant]
     Indication: CONVULSION
     Dosage: 500 MG, UNK
  3. LAMOTRIGINE [Concomitant]
     Indication: CONVULSION
     Dosage: 300 MG, UNK
  4. DINTOINA [Concomitant]
  5. PRIMIDONE [Concomitant]
     Indication: CONVULSION
     Dosage: 750 MG, UNK

REACTIONS (2)
  - Completed suicide [Fatal]
  - Oedema [Unknown]
